FAERS Safety Report 9988489 (Version 1)
Quarter: 2014Q1

REPORT INFORMATION
  Report Type: Spontaneous
  Country: US (occurrence: US)
  Receive Date: 20140310
  Receipt Date: 20140310
  Transmission Date: 20141002
  Serious: No
  Sender: FDA-Public Use
  Company Number: US-BIOGENIDEC-2014BI017496

PATIENT
  Age: 62 Year
  Sex: Female

DRUGS (9)
  1. TECFIDERA [Suspect]
     Indication: MULTIPLE SCLEROSIS
     Route: 048
     Dates: start: 20131030, end: 20131224
  2. COQIO [Concomitant]
  3. CRESTOR [Concomitant]
  4. LORAZEPAM [Concomitant]
  5. METOPROLOL SUCCINATE [Concomitant]
  6. QUINAPRIL-HYDROCHLOROTHIAZIDE [Concomitant]
  7. TOPROL [Concomitant]
  8. VITAMIN D3 [Concomitant]
  9. HYDROCHLOROTHIAZIDE [Concomitant]

REACTIONS (5)
  - Abdominal distension [Recovered/Resolved]
  - Nausea [Unknown]
  - Vomiting [Recovered/Resolved]
  - Diarrhoea [Recovered/Resolved]
  - Abdominal pain upper [Recovered/Resolved]
